FAERS Safety Report 6902319-9 (Version None)
Quarter: 2010Q3

REPORT INFORMATION
  Report Type: 
  Country: None (occurrence: None)
  Receive Date: 20100803
  Receipt Date: 20080515
  Transmission Date: 20110219
  Serious: No
  Sender: FDA-Public Use
  Company Number: US-PFIZER INC-2008036668

PATIENT
  Sex: Female
  Weight: 64.4 kg

DRUGS (3)
  1. LYRICA [Suspect]
     Indication: NEUROPATHY PERIPHERAL
  2. ANTIHYPERTENSIVES [Concomitant]
     Indication: HYPERTENSION
  3. ALL OTHER THERAPEUTIC PRODUCTS [Concomitant]
     Indication: THYROID DISORDER

REACTIONS (2)
  - INCREASED APPETITE [None]
  - WEIGHT INCREASED [None]
